FAERS Safety Report 16563207 (Version 2)
Quarter: 2019Q3

REPORT INFORMATION
  Report Type: Spontaneous
  Country: US (occurrence: US)
  Receive Date: 20190711
  Receipt Date: 20190815
  Transmission Date: 20191004
  Serious: Yes (Death, Hospitalization, Other)
  Sender: FDA-Public Use
  Company Number: US-AMGEN-USASP2019108589

PATIENT

DRUGS (1)
  1. ETANERCEPT [Suspect]
     Active Substance: ETANERCEPT
     Indication: RHEUMATOID ARTHRITIS
     Dosage: UNK
     Route: 065

REACTIONS (14)
  - Arthritis infective [Fatal]
  - Central nervous system infection [Fatal]
  - Osteomyelitis [Fatal]
  - Bacterial infection [Fatal]
  - Respiratory tract infection [Fatal]
  - Urinary tract infection [Fatal]
  - Skin infection [Fatal]
  - Fungal infection [Fatal]
  - Infection [Fatal]
  - Herpes zoster [Fatal]
  - Viral infection [Fatal]
  - Sepsis [Fatal]
  - Abdominal infection [Fatal]
  - Opportunistic infection [Fatal]
